FAERS Safety Report 8629592 (Version 2)
Quarter: 2013Q2

REPORT INFORMATION
  Report Type: Spontaneous
  Country: US (occurrence: US)
  Receive Date: 20120622
  Receipt Date: 20130617
  Transmission Date: 20140414
  Serious: Yes (Hospitalization, Disabling, Other)
  Sender: FDA-Public Use
  Company Number: US-ASTRAZENECA-2012SE36424

PATIENT
  Age: 62 Year
  Sex: Male

DRUGS (15)
  1. NEXIUM [Suspect]
     Indication: GASTROOESOPHAGEAL REFLUX DISEASE
     Dosage: DAILY
     Route: 048
     Dates: start: 2003, end: 2009
  2. PRILOSEC [Suspect]
     Route: 048
  3. PROTONIX [Concomitant]
  4. AVODART [Concomitant]
  5. METOPROLOL [Concomitant]
  6. ASPIRIN [Concomitant]
  7. SIMVASTATIN [Concomitant]
  8. CALCIUM [Concomitant]
  9. FISH OIL [Concomitant]
  10. CUTEIN [Concomitant]
  11. MAGNESIUM [Concomitant]
  12. MULTIVITAMIN [Concomitant]
  13. VITAMIN B [Concomitant]
  14. VITAMIN C [Concomitant]
  15. VITAMIN D [Concomitant]

REACTIONS (3)
  - Cardiac disorder [Unknown]
  - Wrist fracture [Unknown]
  - Osteoporosis [Unknown]
